FAERS Safety Report 8360536-8 (Version None)
Quarter: 2012Q2

REPORT INFORMATION
  Report Type: 
  Country: None (occurrence: None)
  Receive Date: 20120515
  Receipt Date: 20120508
  Transmission Date: 20120825
  Serious: Yes (Other)
  Sender: FDA-Public Use
  Company Number: US-ELI_LILLY_AND_COMPANY-US201205003594

PATIENT
  Sex: Female

DRUGS (6)
  1. VITAMIN B-12 [Concomitant]
     Indication: PREMEDICATION
     Dosage: 1,000 UG, OTHER
     Route: 030
  2. FOLIC ACID [Concomitant]
     Indication: PREMEDICATION
     Dosage: UNK UG, OTHER
     Route: 048
  3. PACLITAXEL [Concomitant]
     Indication: OVARIAN CANCER STAGE III
     Dosage: 60 MG/M2, OTHER
     Route: 033
  4. ALIMTA [Suspect]
     Indication: OVARIAN CANCER STAGE III
     Dosage: 120 MG/M2, OTHER
  5. DEXAMETHASONE [Concomitant]
     Indication: PROPHYLAXIS
     Dosage: 4 MG, OTHER
     Route: 048
  6. CISPLATIN [Concomitant]
     Indication: OVARIAN CANCER STAGE III
     Dosage: 75 MG/M2. OTHER
     Route: 033

REACTIONS (1)
  - CONVULSION [None]
